FAERS Safety Report 16068096 (Version 1)
Quarter: 2019Q1

REPORT INFORMATION
  Report Type: Spontaneous
  Country: US (occurrence: US)
  Receive Date: 20190313
  Receipt Date: 20190313
  Transmission Date: 20190418
  Serious: Yes (Hospitalization, Other)
  Sender: FDA-Public Use
  Company Number: US-ASTRAZENECA-2019SE38239

PATIENT
  Sex: Female

DRUGS (1)
  1. SEROQUEL XR [Suspect]
     Active Substance: QUETIAPINE FUMARATE
     Dosage: 150 UNKNOWN
     Route: 048
     Dates: end: 20190127

REACTIONS (4)
  - Loss of consciousness [Unknown]
  - Electrocardiogram QT interval abnormal [Unknown]
  - Cardiac disorder [Not Recovered/Not Resolved]
  - Dyspnoea [Unknown]
